FAERS Safety Report 25392203 (Version 2)
Quarter: 2025Q2

REPORT INFORMATION
  Report Type: Spontaneous
  Country: NZ (occurrence: NZ)
  Receive Date: 20250603
  Receipt Date: 20250604
  Transmission Date: 20250716
  Serious: Yes (Life-Threatening, Other)
  Sender: PFIZER
  Company Number: NZ-PFIZER INC-PV202500064636

PATIENT
  Age: 60 Year
  Sex: Male

DRUGS (6)
  1. TRANEXAMIC ACID [Suspect]
     Active Substance: TRANEXAMIC ACID
     Indication: Hereditary haemorrhagic telangiectasia
  2. TRANEXAMIC ACID [Suspect]
     Active Substance: TRANEXAMIC ACID
     Indication: Factor VIII deficiency
  3. MOROCTOCOG ALFA [Suspect]
     Active Substance: MOROCTOCOG ALFA
     Indication: Factor VIII deficiency
  4. MOROCTOCOG ALFA [Suspect]
     Active Substance: MOROCTOCOG ALFA
     Indication: Hereditary haemorrhagic telangiectasia
  5. DESMOPRESSIN [Suspect]
     Active Substance: DESMOPRESSIN
     Indication: Hereditary haemorrhagic telangiectasia
  6. DESMOPRESSIN [Suspect]
     Active Substance: DESMOPRESSIN
     Indication: Factor VIII deficiency

REACTIONS (1)
  - Drug ineffective [Unknown]
